FAERS Safety Report 13994326 (Version 1)
Quarter: 2017Q3

REPORT INFORMATION
  Report Type: Spontaneous
  Country: US (occurrence: US)
  Receive Date: 20170920
  Receipt Date: 20170920
  Transmission Date: 20171128
  Serious: Yes (Other)
  Sender: FDA-Public Use
  Company Number: None

PATIENT

DRUGS (2)
  1. LETAIRIS [Suspect]
     Active Substance: AMBRISENTAN
  2. LETARIS [Suspect]
     Active Substance: AMBRISENTAN

REACTIONS (1)
  - Product name confusion [None]
